FAERS Safety Report 22938494 (Version 4)
Quarter: 2023Q4

REPORT INFORMATION
  Report Type: Spontaneous
  Country: GB (occurrence: GB)
  Receive Date: 20230913
  Receipt Date: 20231204
  Transmission Date: 20240109
  Serious: Yes (Other)
  Sender: FDA-Public Use
  Company Number: GB-SUN PHARMACEUTICAL INDUSTRIES LTD-2023RR-406508

PATIENT
  Age: 72 Year
  Sex: Male

DRUGS (3)
  1. TAMSULOSIN HYDROCHLORIDE [Suspect]
     Active Substance: TAMSULOSIN HYDROCHLORIDE
     Indication: Prostatomegaly
     Dosage: UNK UNK, UNKNOWN FREQ.
     Route: 065
  2. FINASTERIDE [Suspect]
     Active Substance: FINASTERIDE
     Indication: Prostatomegaly
     Dosage: UNK UNK, UNKNOWN FREQ.
     Route: 065
  3. DUTASTERIDE [Suspect]
     Active Substance: DUTASTERIDE
     Indication: Prostatomegaly
     Dosage: 500 MG, QD
     Route: 065

REACTIONS (14)
  - Myalgia [Unknown]
  - Arthralgia [Unknown]
  - Gait disturbance [Unknown]
  - Muscle twitching [Unknown]
  - Asthenia [Unknown]
  - Weight increased [Unknown]
  - Depression [Unknown]
  - Decreased appetite [Unknown]
  - Decreased appetite [Unknown]
  - Abdominal distension [Unknown]
  - Disease progression [Unknown]
  - Fatigue [Unknown]
  - Fatigue [Unknown]
  - Off label use [Unknown]
